FAERS Safety Report 8551545-4 (Version None)
Quarter: 2012Q3

REPORT INFORMATION
  Report Type: 
  Country: None (occurrence: None)
  Receive Date: 20120724
  Receipt Date: 20120724
  Transmission Date: 20120928
  Serious: No
  Sender: FDA-Public Use
  Company Number: None

PATIENT
  Sex: Male

DRUGS (1)
  1. NEXAVAR [Suspect]
     Dosage: 400MG BID PO
     Route: 048
     Dates: start: 20120717, end: 20120717

REACTIONS (2)
  - DRUG HYPERSENSITIVITY [None]
  - DYSPHONIA [None]
